FAERS Safety Report 13226277 (Version 3)
Quarter: 2017Q2

REPORT INFORMATION
  Report Type: Spontaneous
  Country: US (occurrence: US)
  Receive Date: 20170213
  Receipt Date: 20170404
  Transmission Date: 20170830
  Serious: No
  Sender: FDA-Public Use
  Company Number: US-PFIZER INC-2017057759

PATIENT
  Age: 5 Year
  Sex: Male

DRUGS (1)
  1. GENOTROPIN MQ [Suspect]
     Active Substance: SOMATROPIN
     Indication: GROWTH HORMONE DEFICIENCY
     Dosage: 1.4 MG, DAILY (6X/WEEK)
     Dates: start: 2011

REACTIONS (3)
  - Anxiety [Not Recovered/Not Resolved]
  - Product quality issue [Recovered/Resolved]
  - Injection site pain [Not Recovered/Not Resolved]

NARRATIVE: CASE EVENT DATE: 2011
